FAERS Safety Report 16145042 (Version 1)
Quarter: 2019Q2

REPORT INFORMATION
  Report Type: Spontaneous
  Country: US (occurrence: US)
  Receive Date: 20190401
  Receipt Date: 20190401
  Transmission Date: 20190711
  Serious: Yes (Life-Threatening)
  Sender: FDA-Public Use
  Company Number: None

PATIENT
  Age: 50 Year
  Sex: Female
  Weight: 64.8 kg

DRUGS (1)
  1. FERRLECIT [Suspect]
     Active Substance: SODIUM FERRIC GLUCONATE COMPLEX
     Indication: IRON DEFICIENCY ANAEMIA
     Dosage: ?          OTHER FREQUENCY:QOD X 5 SCHEDULED;?
     Route: 041
     Dates: start: 20190329, end: 20190329

REACTIONS (7)
  - Headache [None]
  - Hypotension [None]
  - Heart rate decreased [None]
  - Nausea [None]
  - Musculoskeletal stiffness [None]
  - Loss of consciousness [None]
  - Infusion related reaction [None]

NARRATIVE: CASE EVENT DATE: 20190329
